FAERS Safety Report 14898731 (Version 5)
Quarter: 2019Q2

REPORT INFORMATION
  Report Type: Spontaneous
  Country: US (occurrence: US)
  Receive Date: 20180515
  Receipt Date: 20190605
  Transmission Date: 20190711
  Serious: No
  Sender: FDA-Public Use
  Company Number: US-ACTELION-A-US2018-171262

PATIENT
  Age: 41 Year
  Sex: Female
  Weight: 54.42 kg

DRUGS (3)
  1. OPSUMIT [Suspect]
     Active Substance: MACITENTAN
     Indication: PULMONARY ARTERIAL HYPERTENSION
     Dosage: UNK
     Route: 048
     Dates: start: 20180408
  2. UPTRAVI [Suspect]
     Active Substance: SELEXIPAG
     Indication: PULMONARY ARTERIAL HYPERTENSION
     Dosage: 200 MCG, BID
     Route: 048
     Dates: start: 20180418, end: 20180503
  3. UPTRAVI [Suspect]
     Active Substance: SELEXIPAG
     Dosage: 400 MCG, BID
     Route: 048

REACTIONS (9)
  - Headache [Unknown]
  - Nausea [Unknown]
  - Pain [Unknown]
  - Pyrexia [Unknown]
  - Myalgia [Unknown]
  - Decreased appetite [Unknown]
  - Fatigue [Unknown]
  - Vomiting [Unknown]
  - Arthralgia [Unknown]

NARRATIVE: CASE EVENT DATE: 201804
